FAERS Safety Report 12373192 (Version 1)
Quarter: 2016Q2

REPORT INFORMATION
  Report Type: Spontaneous
  Country: US (occurrence: US)
  Receive Date: 20160516
  Receipt Date: 20160516
  Transmission Date: 20160815
  Serious: Yes (Other)
  Sender: FDA-Public Use
  Company Number: US-SHIRE-US201605082

PATIENT
  Age: 61 Year
  Sex: Female

DRUGS (6)
  1. PYRIDOSTIGMINE [Concomitant]
     Active Substance: PYRIDOSTIGMINE
     Indication: PRODUCT USED FOR UNKNOWN INDICATION
     Dosage: UNK, UNKNOWN
     Route: 065
  2. 426 (MIDODRINE) [Suspect]
     Active Substance: MIDODRINE
     Indication: PRODUCT USED FOR UNKNOWN INDICATION
     Dosage: UNK, UNKNOWN
     Route: 048
  3. PREDNISONE. [Suspect]
     Active Substance: PREDNISONE
     Indication: PRODUCT USED FOR UNKNOWN INDICATION
     Dosage: UNK, UNKNOWN
     Route: 065
  4. NORTHERA [Suspect]
     Active Substance: DROXIDOPA
     Indication: PRODUCT USED FOR UNKNOWN INDICATION
     Dosage: 300 MG, 3X/DAY:TID
     Route: 065
  5. NORTHERA [Suspect]
     Active Substance: DROXIDOPA
     Dosage: 200 MG, 3X/DAY:TID
     Route: 065
  6. NORTHERA [Suspect]
     Active Substance: DROXIDOPA
     Dosage: 300 MG, 3X/DAY:TID
     Route: 065

REACTIONS (3)
  - Dizziness [Unknown]
  - Hypertension [Unknown]
  - Headache [Unknown]
